FAERS Safety Report 17871578 (Version 1)
Quarter: 2020Q2

REPORT INFORMATION
  Report Type: Spontaneous
  Country: US (occurrence: US)
  Receive Date: 20200608
  Receipt Date: 20200608
  Transmission Date: 20200714
  Serious: No
  Sender: FDA-Public Use
  Company Number: None

PATIENT
  Age: 48 Year
  Sex: Female
  Weight: 63.45 kg

DRUGS (14)
  1. BOTOX [Concomitant]
     Active Substance: ONABOTULINUMTOXINA
  2. RIBOFLAVIN [Concomitant]
     Active Substance: RIBOFLAVIN
  3. COQ 10 [Concomitant]
     Active Substance: UBIDECARENONE
  4. CLONAZEPAM. [Concomitant]
     Active Substance: CLONAZEPAM
  5. TIZANIDINE. [Concomitant]
     Active Substance: TIZANIDINE
  6. NP THYROID [Suspect]
     Active Substance: LEVOTHYROXINE\LIOTHYRONINE
     Indication: HYPOTHYROIDISM
     Dosage: ?          QUANTITY:90 TABLET(S);?
     Route: 048
     Dates: start: 20181030, end: 20200608
  7. MAGNESIUM [Concomitant]
     Active Substance: MAGNESIUM
  8. PROBIOTIC [Concomitant]
     Active Substance: PROBIOTICS NOS
  9. EXCEDRIN MIGRAINE [Concomitant]
     Active Substance: ACETAMINOPHEN\ASPIRIN\CAFFEINE
  10. ALEVE [Concomitant]
     Active Substance: NAPROXEN SODIUM
  11. REYVOW [Concomitant]
     Active Substance: LASMIDITAN
  12. IBUPROFEN. [Concomitant]
     Active Substance: IBUPROFEN
  13. VITAMIN D3 [Concomitant]
     Active Substance: CHOLECALCIFEROL
  14. CAMBIA [Concomitant]
     Active Substance: DICLOFENAC POTASSIUM

REACTIONS (9)
  - Dizziness [None]
  - Anxiety [None]
  - Dry eye [None]
  - Eye irritation [None]
  - Abdominal pain upper [None]
  - Abdominal distension [None]
  - Weight increased [None]
  - Migraine [None]
  - Palpitations [None]

NARRATIVE: CASE EVENT DATE: 20191023
